FAERS Safety Report 7576140-5 (Version None)
Quarter: 2011Q2

REPORT INFORMATION
  Report Type: 
  Country: None (occurrence: None)
  Receive Date: 20110623
  Receipt Date: 20110623
  Transmission Date: 20111010
  Serious: Yes (Other)
  Sender: FDA-Public Use
  Company Number: None

PATIENT
  Age: 51 Year
  Sex: Female
  Weight: 81.3 kg

DRUGS (12)
  1. MIRTAZAPINE [Concomitant]
  2. ZOFRAN [Concomitant]
  3. BUSPIRONE HCL [Concomitant]
  4. GABAPENTIN [Concomitant]
  5. CARBAMAZEPINE [Concomitant]
  6. COMBIVENT [Concomitant]
  7. METFORMIN HCL [Concomitant]
  8. MEVACOR [Concomitant]
  9. MULTIHANCE [Suspect]
     Indication: NUCLEAR MAGNETIC RESONANCE IMAGING
     Dates: start: 20110513, end: 20110513
  10. WELLBUTRIN SR [Concomitant]
  11. ADVAIR DISKUS 100/50 [Concomitant]
  12. ASPIRIN [Concomitant]

REACTIONS (1)
  - ANAPHYLACTIC REACTION [None]
